FAERS Safety Report 12812633 (Version 1)
Quarter: 2016Q4

REPORT INFORMATION
  Report Type: Spontaneous
  Country: US (occurrence: US)
  Receive Date: 20161005
  Receipt Date: 20161005
  Transmission Date: 20170207
  Serious: No
  Sender: FDA-Public Use
  Company Number: US-ELI_LILLY_AND_COMPANY-US201610000524

PATIENT

DRUGS (1)
  1. HUMULIN R U-500 [Suspect]
     Active Substance: INSULIN HUMAN
     Indication: TYPE 1 DIABETES MELLITUS
     Dosage: 40 U, UNK
     Route: 065

REACTIONS (4)
  - Vision blurred [Unknown]
  - Blood glucose increased [Unknown]
  - Chest pain [Unknown]
  - Incorrect dose administered [Unknown]
